FAERS Safety Report 16592181 (Version 2)
Quarter: 2019Q3

REPORT INFORMATION
  Report Type: Spontaneous
  Country: US (occurrence: US)
  Receive Date: 20190718
  Receipt Date: 20190826
  Transmission Date: 20191004
  Serious: Yes (Other)
  Sender: FDA-Public Use
  Company Number: US-PFIZER INC-2019305363

PATIENT
  Age: 58 Year
  Sex: Male
  Weight: 109 kg

DRUGS (1)
  1. VIAGRA [Suspect]
     Active Substance: SILDENAFIL CITRATE
     Indication: ERECTILE DYSFUNCTION
     Dosage: 50 MG, AS NEEDED (CHOP 100 MG IN HALF)
     Route: 048
     Dates: start: 2014

REACTIONS (2)
  - Posterior capsule opacification [Unknown]
  - Blindness [Unknown]
